FAERS Safety Report 11108853 (Version 1)
Quarter: 2015Q2

REPORT INFORMATION
  Report Type: Spontaneous
  Country: US (occurrence: None)
  Receive Date: 20150511
  Receipt Date: 20150511
  Transmission Date: 20150821
  Serious: No
  Sender: FDA-Public Use
  Company Number: None

PATIENT
  Age: 51 Year
  Sex: Female
  Weight: 77.11 kg

DRUGS (4)
  1. DEPAKOTE [Concomitant]
     Active Substance: DIVALPROEX SODIUM
  2. PROZAC [Concomitant]
     Active Substance: FLUOXETINE HYDROCHLORIDE
  3. TIZANIDINE HCL [Suspect]
     Active Substance: TIZANIDINE HYDROCHLORIDE
     Indication: INSOMNIA
     Dosage: 2 PILLS
     Route: 048
     Dates: start: 20141218, end: 20150324
  4. ADDERALL [Concomitant]
     Active Substance: AMPHETAMINE ASPARTATE\AMPHETAMINE SULFATE\DEXTROAMPHETAMINE SACCHARATE\DEXTROAMPHETAMINE SULFATE

REACTIONS (13)
  - Jaw disorder [None]
  - Dry mouth [None]
  - Asthenia [None]
  - Parkinsonism [None]
  - Dizziness postural [None]
  - Dysuria [None]
  - Dyspnoea [None]
  - Palpitations [None]
  - Muscle atrophy [None]
  - Tremor [None]
  - Fatigue [None]
  - Hyperhidrosis [None]
  - Cataract [None]

NARRATIVE: CASE EVENT DATE: 20150427
